FAERS Safety Report 5757497-4 (Version None)
Quarter: 2008Q2

REPORT INFORMATION
  Report Type: 
  Country: None (occurrence: None)
  Receive Date: 20080603
  Receipt Date: 20080523
  Transmission Date: 20081010
  Serious: Yes (Disabling)
  Sender: FDA-Public Use
  Company Number: GB-BOEHRINGER INGELHEIM GMBH, GERMANY-2008-BP-05893YA

PATIENT
  Sex: Male
  Weight: 82 kg

DRUGS (8)
  1. FLOMAXTRA XL (TAMSULOSIN) ORODISPERSABLE CR TABLET 0.4MG [Suspect]
     Indication: BENIGN PROSTATIC HYPERPLASIA
     Route: 048
     Dates: start: 20070219
  2. FLOMAXTRA XL (TAMSULOSIN) ORODISPERSABLE CR TABLET 0.4MG [Suspect]
     Route: 048
  3. OTHER VITAMIN PRODUCTS, COMBINATIONS [Suspect]
     Route: 065
  4. CANDESARTAN [Concomitant]
     Indication: HYPERTENSION
     Route: 065
  5. AMLODIPINE [Concomitant]
     Indication: HYPERTENSION
     Route: 065
     Dates: end: 20080326
  6. ASPIRIN [Concomitant]
     Indication: HYPERTENSION
     Route: 065
     Dates: end: 20080326
  7. LANSOPRAZOLE [Concomitant]
     Indication: PAIN IN EXTREMITY
     Route: 065
     Dates: end: 20080326
  8. CALCICHEW [Concomitant]
     Indication: PAIN IN EXTREMITY
     Route: 065
     Dates: end: 20080326

REACTIONS (6)
  - FATIGUE [None]
  - MALAISE [None]
  - MICTURITION DISORDER [None]
  - MIGRAINE [None]
  - PALPITATIONS [None]
  - TACHYCARDIA [None]
